FAERS Safety Report 7846145-5 (Version None)
Quarter: 2011Q4

REPORT INFORMATION
  Report Type: 
  Country: None (occurrence: None)
  Receive Date: 20111025
  Receipt Date: 20111018
  Transmission Date: 20120403
  Serious: Yes (Life-Threatening, Hospitalization)
  Sender: FDA-Public Use
  Company Number: DE-ASTRAZENECA-2011SE62868

PATIENT
  Sex: Male
  Weight: 68 kg

DRUGS (3)
  1. VANCOMYCIN HCL [Suspect]
     Indication: PNEUMONIA
     Route: 042
     Dates: start: 20110530, end: 20110603
  2. ECULIZUMAB [Suspect]
     Indication: HAEMOLYTIC URAEMIC SYNDROME
     Dosage: 10 MG/ML 900 MG UNKNOWN FREQUENCY
     Route: 042
     Dates: start: 20110527, end: 20110527
  3. MEROPENEM [Suspect]
     Indication: PNEUMONIA
     Route: 042
     Dates: start: 20110530, end: 20110603

REACTIONS (1)
  - RESPIRATORY FAILURE [None]
